FAERS Safety Report 13630589 (Version 1)
Quarter: 2017Q2

REPORT INFORMATION
  Report Type: Spontaneous
  Country: US (occurrence: US)
  Receive Date: 20170531
  Receipt Date: 20170531
  Transmission Date: 20170830
  Serious: No
  Sender: FDA-Public Use
  Company Number: US-ASTELLAS-1313503

PATIENT
  Sex: Male

DRUGS (14)
  1. PEPCID [Concomitant]
     Active Substance: FAMOTIDINE
  2. AVASTIN [Suspect]
     Active Substance: BEVACIZUMAB
     Indication: LUNG NEOPLASM MALIGNANT
     Route: 042
     Dates: start: 20131008
  3. ALBUTEROL SULFATE. [Concomitant]
     Active Substance: ALBUTEROL SULFATE
     Route: 065
  4. DULCOLAX (BISACODYL) [Concomitant]
     Active Substance: BISACODYL
     Route: 048
  5. TARCEVA [Suspect]
     Active Substance: ERLOTINIB HYDROCHLORIDE
     Indication: LUNG NEOPLASM MALIGNANT
  6. ALKA-SELTZER (UNITED STATES) [Concomitant]
  7. TARCEVA [Suspect]
     Active Substance: ERLOTINIB HYDROCHLORIDE
     Indication: LUNG NEOPLASM MALIGNANT
     Route: 048
     Dates: start: 20131008
  8. PROVENTIL [Concomitant]
     Active Substance: ALBUTEROL
  9. ALPRAZOLAM. [Concomitant]
     Active Substance: ALPRAZOLAM
     Route: 048
  10. FLOVENT [Concomitant]
     Active Substance: FLUTICASONE PROPIONATE
  11. LYRICA [Concomitant]
     Active Substance: PREGABALIN
     Route: 048
  12. IPRATROPIUM BROMIDE. [Concomitant]
     Active Substance: IPRATROPIUM BROMIDE
     Dosage: 0.02% SOLUTION.
     Route: 065
  13. FERROUS SULFATE. [Concomitant]
     Active Substance: FERROUS SULFATE
  14. PEPSIN [Concomitant]
     Active Substance: PEPSIN

REACTIONS (4)
  - Viral upper respiratory tract infection [Unknown]
  - Somnolence [Unknown]
  - Diarrhoea [Unknown]
  - Aphonia [Not Recovered/Not Resolved]
